FAERS Safety Report 24458666 (Version 1)
Quarter: 2024Q4

REPORT INFORMATION
  Report Type: Spontaneous
  Country: US (occurrence: US)
  Receive Date: 20241018
  Receipt Date: 20241018
  Transmission Date: 20250115
  Serious: No
  Sender: DERMAVANT SCIENCES, INC.
  Company Number: US-Dermavant-001284

PATIENT
  Age: 85 Year
  Sex: Female

DRUGS (5)
  1. VTAMA [Suspect]
     Active Substance: TAPINAROF
     Indication: Psoriasis
     Route: 061
     Dates: start: 20240906
  2. FARXIGA [Concomitant]
     Active Substance: DAPAGLIFLOZIN PROPANEDIOL
  3. LOSARTAN [Concomitant]
     Active Substance: LOSARTAN
  4. FENOFIBRATE [Concomitant]
     Active Substance: FENOFIBRATE
  5. ADVIL [Concomitant]
     Active Substance: IBUPROFEN

REACTIONS (4)
  - Application site irritation [Unknown]
  - Application site pruritus [Unknown]
  - Application site pain [Unknown]
  - Application site erythema [Unknown]
